FAERS Safety Report 7269458-7 (Version None)
Quarter: 2011Q1

REPORT INFORMATION
  Report Type: 
  Country: None (occurrence: None)
  Receive Date: 20110202
  Receipt Date: 20110120
  Transmission Date: 20110831
  Serious: Yes (Hospitalization)
  Sender: FDA-Public Use
  Company Number: FR-JNJFOC-20110107689

PATIENT
  Sex: Male

DRUGS (10)
  1. CYTARABINE [Concomitant]
  2. ROCEPHIN [Concomitant]
  3. PRIMPERAN TAB [Suspect]
     Indication: PRODUCT USED FOR UNKNOWN INDICATION
     Route: 048
  4. VALACICLOVIR [Concomitant]
  5. BACTRIM [Suspect]
     Indication: PRODUCT USED FOR UNKNOWN INDICATION
     Route: 048
  6. LEDERFOLINE [Suspect]
     Indication: PRODUCT USED FOR UNKNOWN INDICATION
     Route: 048
  7. ZAVEDOS [Concomitant]
  8. GENTAMICIN [Concomitant]
  9. DEXCHLORPHENIRAMINE MALEATE [Concomitant]
  10. TOPALGIC [Suspect]
     Indication: PRODUCT USED FOR UNKNOWN INDICATION
     Route: 048

REACTIONS (1)
  - DRUG RASH WITH EOSINOPHILIA AND SYSTEMIC SYMPTOMS [None]
